FAERS Safety Report 7413530-5 (Version None)
Quarter: 2011Q2

REPORT INFORMATION
  Report Type: 
  Country: None (occurrence: None)
  Receive Date: 20110413
  Receipt Date: 20110330
  Transmission Date: 20111010
  Serious: Yes (Other)
  Sender: FDA-Public Use
  Company Number: CA-JNJFOC-20110400369

PATIENT
  Sex: Female
  Weight: 63.6 kg

DRUGS (5)
  1. REMICADE [Suspect]
     Indication: CROHN'S DISEASE
     Route: 042
  2. VITAMIN D [Concomitant]
     Route: 065
  3. IMURAN [Concomitant]
     Route: 048
  4. MATERNA [Concomitant]
     Route: 065
  5. CALCIUM [Concomitant]
     Route: 065

REACTIONS (2)
  - ABORTION SPONTANEOUS [None]
  - DRUG EXPOSURE DURING PREGNANCY [None]
